FAERS Safety Report 16586267 (Version 1)
Quarter: 2019Q3

REPORT INFORMATION
  Report Type: Spontaneous
  Country: FR (occurrence: FR)
  Receive Date: 20190717
  Receipt Date: 20190717
  Transmission Date: 20191004
  Serious: Yes (Hospitalization)
  Sender: FDA-Public Use
  Company Number: FR-TEVA-2019-FR-1078169

PATIENT
  Age: 44 Year
  Sex: Male
  Weight: 66.5 kg

DRUGS (1)
  1. FLUOROURACILE [Suspect]
     Active Substance: FLUOROURACIL
     Indication: NEOPLASM MALIGNANT
     Route: 041
     Dates: start: 20190430, end: 20190504

REACTIONS (1)
  - Hyperammonaemic encephalopathy [Recovered/Resolved]

NARRATIVE: CASE EVENT DATE: 20190504
